FAERS Safety Report 9030561 (Version 2)
Quarter: 2015Q1

REPORT INFORMATION
  Report Type: Spontaneous
  Country: FR (occurrence: FR)
  Receive Date: 20130122
  Receipt Date: 20150226
  Transmission Date: 20150721
  Serious: Yes (Hospitalization)
  Sender: FDA-Public Use
  Company Number: FR-TEVA-380103ISR

PATIENT
  Age: 58 Year
  Sex: Male

DRUGS (6)
  1. LEVOFOLINATE DE CALCIUM [Concomitant]
  2. ZOPHREN 8 MG [Concomitant]
  3. OXALIPLATINE TEVA 5 MG/ML, SOLUTION A DILUER POUR PERFUSION [Suspect]
     Active Substance: OXALIPLATIN
     Indication: SARCOMA
     Dates: start: 20121026
  4. IRINOTECAN [Concomitant]
     Active Substance: IRINOTECAN
  5. METHYLPREDNISOLONE MERCK [Concomitant]
     Active Substance: METHYLPREDNISOLONE
  6. ATROPINE [Concomitant]
     Active Substance: ATROPINE

REACTIONS (5)
  - Hypertension [Recovered/Resolved]
  - Hyperhidrosis [Recovered/Resolved]
  - Vomiting [Recovered/Resolved]
  - Infusion related reaction [Recovered/Resolved]
  - Tachycardia [Recovered/Resolved]

NARRATIVE: CASE EVENT DATE: 20121026
